FAERS Safety Report 9115125 (Version 2)
Quarter: 2016Q2

REPORT INFORMATION
  Report Type: Spontaneous
  Country: US (occurrence: US)
  Receive Date: 20130225
  Receipt Date: 20160406
  Transmission Date: 20160815
  Serious: Yes (Hospitalization)
  Sender: FDA-Public Use
  Company Number: US-COVIDIEN/TYCO HEALTHCARE/MALLINCKRODT-T201103030

PATIENT
  Age: 15 Year
  Sex: Male

DRUGS (1)
  1. GABLOFEN [Suspect]
     Active Substance: BACLOFEN
     Indication: PRODUCT USED FOR UNKNOWN INDICATION
     Route: 037

REACTIONS (10)
  - Muscle spasticity [Recovered/Resolved]
  - Device occlusion [Recovered/Resolved]
  - Head banging [Recovered/Resolved]
  - Anxiety [Recovered/Resolved]
  - Hypertonia [Recovered/Resolved]
  - Device malfunction [Recovered/Resolved]
  - Insomnia [Recovered/Resolved]
  - Implant site infection [Recovered/Resolved]
  - Irritability [Recovered/Resolved]
  - Pain [Recovered/Resolved]

NARRATIVE: CASE EVENT DATE: 20110914
